FAERS Safety Report 21041683 (Version 1)
Quarter: 2022Q3

REPORT INFORMATION
  Report Type: Spontaneous
  Country: JP (occurrence: JP)
  Receive Date: 20220705
  Receipt Date: 20220705
  Transmission Date: 20221027
  Serious: Yes (Hospitalization)
  Sender: FDA-Public Use
  Company Number: JP-CHEPLA-2022005603

PATIENT
  Age: 63 Year
  Sex: Male

DRUGS (9)
  1. GANCICLOVIR [Suspect]
     Active Substance: GANCICLOVIR
     Dosage: DENOSINE FOR I.V.INFUSION 500MG (IV DRIP) 500 MILLIGRAM
  2. REMICADE [Suspect]
     Active Substance: INFLIXIMAB
     Indication: Colitis ulcerative
     Dosage: REMICADE FOR I.V. INFUSION100 (IV DRIP) 100 MILLIGRAM
  3. AZATHIOPRINE [Suspect]
     Active Substance: AZATHIOPRINE
     Indication: Colitis ulcerative
     Route: 048
  4. SIMPONI [Suspect]
     Active Substance: GOLIMUMAB
     Route: 058
  5. STELARA [Suspect]
     Active Substance: USTEKINUMAB
  6. TACROLIMUS [Suspect]
     Active Substance: TACROLIMUS
  7. PREDNISOLONE [Concomitant]
     Active Substance: PREDNISOLONE
  8. VEDOLIZUMAB [Concomitant]
     Active Substance: VEDOLIZUMAB
  9. TOFACITINIB CITRATE [Concomitant]
     Active Substance: TOFACITINIB CITRATE

REACTIONS (3)
  - Thrombosis [Unknown]
  - Colitis ulcerative [Unknown]
  - Varicella zoster virus infection [Unknown]
